FAERS Safety Report 7223218 (Version 6)
Quarter: 2012Q4

REPORT INFORMATION
  Report Type: Report from Study
  Country: CA (occurrence: CA)
  Receive Date: 20091218
  Receipt Date: 20121228
  Transmission Date: 20130627
  Serious: Yes (Hospitalization, Disabling)
  Sender: FDA-Public Use
  Company Number: CA-ROCHE-639774

PATIENT
  Age: 42 Year
  Sex: Female
  Weight: 72.2 kg

DRUGS (8)
  1. BEVACIZUMAB [Suspect]
     Indication: BREAST CANCER
     Dosage: FORM: VIALS, DOSE LEVEL 15 MG/KG, LAST DOSE PRIOR TO SAE: 10 JUNE 2009
     Route: 042
     Dates: start: 20090318, end: 20090723
  2. TRASTUZUMAB [Suspect]
     Indication: BREAST CANCER
     Dosage: DOSE LEVEL: 6 MG/KG, FORM: VIALS, LAST DOSE PRIOR TO SAE: 10 JUNE 2009
     Route: 042
     Dates: start: 20090318, end: 20090723
  3. TRASTUZUMAB [Suspect]
     Dosage: DOSAGE REGIMEN NOT PER PROTOCOL. (OFF-STUDY).
MONOTHERAPY.
     Route: 042
     Dates: start: 20090814, end: 20100317
  4. DOCETAXEL [Suspect]
     Indication: BREAST CANCER
     Dosage: DATE OF LAST DOSE PRIOR TO SAE: 10 JUNE 2009, FORM VIALS, DOSE LEVEL: 75 MG/M2
     Route: 042
     Dates: start: 20090318, end: 20090723
  5. CARBOPLATIN [Suspect]
     Indication: BREAST CANCER
     Dosage: LAST DOSE PRIOR TO SAE: 10 JUNE 2009, DOSE LEVEL: 6 AUC, FORM: VIALS
     Route: 042
     Dates: start: 20090318, end: 20090723
  6. NORVASC [Concomitant]
     Route: 065
  7. HYDROCHLOROTHIAZIDE [Concomitant]
     Route: 065
  8. PANTOLOC [Concomitant]
     Route: 065

REACTIONS (2)
  - Febrile neutropenia [Recovered/Resolved]
  - Encephalopathy [Not Recovered/Not Resolved]
